FAERS Safety Report 20190037 (Version 1)
Quarter: 2021Q4

REPORT INFORMATION
  Report Type: Spontaneous
  Country: DE (occurrence: DE)
  Receive Date: 20211215
  Receipt Date: 20211215
  Transmission Date: 20220303
  Serious: Yes (Other)
  Sender: FDA-Public Use
  Company Number: DE-002147023-NVSC2021DE241684

PATIENT
  Age: 8 Year
  Sex: Female
  Weight: 42.7 kg

DRUGS (1)
  1. VALPROIC ACID [Suspect]
     Active Substance: VALPROIC ACID
     Indication: Foetal exposure during pregnancy
     Dosage: UNK (MATERNAL DOSE: 500 MG, BID)
     Route: 065

REACTIONS (13)
  - Mental impairment [Not Recovered/Not Resolved]
  - Dyspraxia [Not Recovered/Not Resolved]
  - Hypermetropia [Not Recovered/Not Resolved]
  - Hyperacusis [Not Recovered/Not Resolved]
  - Attention deficit hyperactivity disorder [Not Recovered/Not Resolved]
  - Developmental delay [Not Recovered/Not Resolved]
  - Insomnia [Unknown]
  - Foetal exposure during pregnancy [Not Recovered/Not Resolved]
  - Depression [Recovering/Resolving]
  - Auditory disorder [Not Recovered/Not Resolved]
  - Cognitive disorder [Not Recovered/Not Resolved]
  - Headache [Unknown]
  - Central auditory processing disorder [Not Recovered/Not Resolved]
